FAERS Safety Report 9030735 (Version 2)
Quarter: 2017Q3

REPORT INFORMATION
  Report Type: Report from Study
  Country: DE (occurrence: DE)
  Receive Date: 20130123
  Receipt Date: 20170703
  Transmission Date: 20171128
  Serious: Yes (Life-Threatening, Hospitalization, Other)
  Sender: FDA-Public Use
  Company Number: DE-ROCHE-1148102

PATIENT
  Age: 51 Year
  Sex: Female
  Weight: 80 kg

DRUGS (13)
  1. DICLOFENAC [Concomitant]
     Active Substance: DICLOFENAC
     Route: 065
     Dates: start: 200705, end: 201212
  2. TOCILIZUMAB. [Suspect]
     Active Substance: TOCILIZUMAB
     Route: 042
     Dates: start: 20120809
  3. TOCILIZUMAB. [Suspect]
     Active Substance: TOCILIZUMAB
     Route: 042
     Dates: start: 20120905, end: 20120908
  4. PREDNISOLON [Concomitant]
     Active Substance: PREDNISOLONE
     Route: 065
  5. CELECOXIB. [Concomitant]
     Active Substance: CELECOXIB
     Route: 065
     Dates: start: 200705
  6. LEFLUNOMID [Suspect]
     Active Substance: LEFLUNOMIDE
     Indication: RHEUMATOID ARTHRITIS
     Route: 048
     Dates: start: 20070501
  7. LEFLUNOMID [Suspect]
     Active Substance: LEFLUNOMIDE
     Route: 048
     Dates: end: 201211
  8. ISOZID [Concomitant]
     Active Substance: ISONIAZID
     Route: 065
     Dates: start: 20110504, end: 201202
  9. TOCILIZUMAB. [Suspect]
     Active Substance: TOCILIZUMAB
     Route: 042
     Dates: start: 20120713
  10. TOCILIZUMAB. [Suspect]
     Active Substance: TOCILIZUMAB
     Route: 042
     Dates: start: 20120613
  11. PREDNISOLON [Concomitant]
     Active Substance: PREDNISOLONE
     Route: 048
  12. PREDNISOLON [Concomitant]
     Active Substance: PREDNISOLONE
     Route: 065
  13. TOCILIZUMAB. [Suspect]
     Active Substance: TOCILIZUMAB
     Indication: RHEUMATOID ARTHRITIS
     Route: 042
     Dates: start: 20110630

REACTIONS (5)
  - Erysipelas [Recovering/Resolving]
  - Cellulitis [Recovered/Resolved]
  - Tooth extraction [Recovered/Resolved]
  - Tooth infection [Recovered/Resolved]
  - Immunoglobulins decreased [Unknown]

NARRATIVE: CASE EVENT DATE: 20120919
